FAERS Safety Report 4959083-2 (Version None)
Quarter: 2006Q1

REPORT INFORMATION
  Report Type: 
  Country: None (occurrence: None)
  Receive Date: 20060330
  Receipt Date: 20060330
  Transmission Date: 20060701
  Serious: Yes (Hospitalization)
  Sender: FDA-Public Use
  Company Number: None

PATIENT
  Age: 65 Year
  Sex: Male
  Weight: 117 kg

DRUGS (7)
  1. ERBITUX [Suspect]
     Indication: TONGUE NEOPLASM MALIGNANT STAGE UNSPECIFIED
     Dosage: 250MG  SEE IMAGE
     Dates: start: 20060221
  2. CARBOPLATIN [Concomitant]
  3. TAXOL [Concomitant]
  4. COUMADIN [Concomitant]
  5. LANOXIN [Concomitant]
  6. PERCOCET [Concomitant]
  7. LIPITOR [Concomitant]

REACTIONS (3)
  - HAEMATEMESIS [None]
  - HYPOTENSION [None]
  - PYREXIA [None]
